FAERS Safety Report 6865652-5 (Version None)
Quarter: 2010Q3

REPORT INFORMATION
  Report Type: 
  Country: None (occurrence: None)
  Receive Date: 20100721
  Receipt Date: 20080429
  Transmission Date: 20110219
  Serious: No
  Sender: FDA-Public Use
  Company Number: US-PFIZER INC-2008038018

PATIENT
  Sex: Female
  Weight: 54.4 kg

DRUGS (4)
  1. CHANTIX [Suspect]
     Indication: SMOKING CESSATION THERAPY
     Route: 048
     Dates: start: 20071015, end: 20080420
  2. VITAMINS [Concomitant]
     Route: 048
  3. PREMARIN [Concomitant]
     Route: 048
  4. NEXIUM [Concomitant]
     Route: 048

REACTIONS (6)
  - DIZZINESS [None]
  - FEELING ABNORMAL [None]
  - INFLUENZA [None]
  - IRRITABILITY [None]
  - MALAISE [None]
  - NAUSEA [None]
